FAERS Safety Report 7827240-3 (Version None)
Quarter: 2011Q4

REPORT INFORMATION
  Report Type: 
  Country: None (occurrence: None)
  Receive Date: 20111020
  Receipt Date: 20111017
  Transmission Date: 20120403
  Serious: Yes (Hospitalization, Other)
  Sender: FDA-Public Use
  Company Number: US-PFIZER INC-2011146816

PATIENT
  Sex: Female

DRUGS (1)
  1. CHANTIX [Suspect]
     Indication: SMOKING CESSATION THERAPY
     Dosage: 0.5 MG, DAILY
     Dates: start: 20090403, end: 20090524

REACTIONS (4)
  - LOSS OF CONSCIOUSNESS [None]
  - MENTAL DISORDER [None]
  - IMPAIRED DRIVING ABILITY [None]
  - EMOTIONAL DISTRESS [None]
